FAERS Safety Report 24024446 (Version 1)
Quarter: 2024Q2

REPORT INFORMATION
  Report Type: Report from Study
  Country: IN (occurrence: IN)
  Receive Date: 20240628
  Receipt Date: 20240628
  Transmission Date: 20240716
  Serious: No
  Sender: FDA-Public Use
  Company Number: IN-ROCHE-3363375

PATIENT
  Age: 38 Year
  Sex: Female

DRUGS (2)
  1. PHESGO [Suspect]
     Active Substance: HYALURONIDASE-ZZXF\PERTUZUMAB\TRASTUZUMAB
     Indication: Breast cancer
     Route: 058
     Dates: start: 20230119
  2. CARBOPLATIN [Concomitant]
     Active Substance: CARBOPLATIN

REACTIONS (4)
  - Vomiting [Unknown]
  - Anxiety [Unknown]
  - Confusional state [Unknown]
  - White blood cell count decreased [Unknown]
